FAERS Safety Report 6093141-7 (Version None)
Quarter: 2009Q1

REPORT INFORMATION
  Report Type: 
  Country: None (occurrence: None)
  Receive Date: 20090226
  Receipt Date: 20090216
  Transmission Date: 20090719
  Serious: Yes (Hospitalization)
  Sender: FDA-Public Use
  Company Number: FR-PFIZER INC-2009171658

PATIENT

DRUGS (1)
  1. SOMAVERT [Suspect]
     Dosage: 10 MG, UNK
     Route: 058
     Dates: start: 20081128

REACTIONS (3)
  - BLOOD ALKALINE PHOSPHATASE INCREASED [None]
  - INJECTION SITE REACTION [None]
  - PYREXIA [None]
